FAERS Safety Report 4687477-1 (Version None)
Quarter: 2005Q2

REPORT INFORMATION
  Report Type: 
  Country: None (occurrence: None)
  Receive Date: 20050609
  Receipt Date: 20050609
  Transmission Date: 20051028
  Serious: Yes (Other)
  Sender: FDA-Public Use
  Company Number: None

PATIENT
  Sex: Female
  Weight: 62.5 kg

DRUGS (3)
  1. TEMODAR [Suspect]
     Indication: GLIOBLASTOMA MULTIFORME
     Dosage: 75 MG/M2
     Dates: start: 20050510
  2. CPT 11 [Suspect]
     Indication: GLIOBLASTOMA MULTIFORME
     Dosage: 200 MG/MON DAY 1 AND DAY 15
     Dates: start: 20050510
  3. RADIATION [Suspect]
     Indication: GLIOBLASTOMA MULTIFORME
     Dates: start: 20050510

REACTIONS (2)
  - DYSPNOEA [None]
  - PULMONARY EMBOLISM [None]
